FAERS Safety Report 17598359 (Version 1)
Quarter: 2020Q1

REPORT INFORMATION
  Report Type: Spontaneous
  Country: US (occurrence: US)
  Receive Date: 20200327
  Receipt Date: 20200327
  Transmission Date: 20200409
  Serious: Yes (Death)
  Sender: FDA-Public Use
  Company Number: None

PATIENT
  Age: 75 Year
  Sex: Female

DRUGS (1)
  1. PROLIA [Suspect]
     Active Substance: DENOSUMAB
     Indication: OSTEOPOROSIS
     Dosage: ?          OTHER DOSE:60MG/1ML (REMS);OTHER FREQUENCY:1 EVERY 6 MONTHS;?
     Route: 058
     Dates: start: 20190731, end: 202002

REACTIONS (1)
  - Death [None]

NARRATIVE: CASE EVENT DATE: 202002
